FAERS Safety Report 6798121-1 (Version None)
Quarter: 2010Q2

REPORT INFORMATION
  Report Type: 
  Country: None (occurrence: None)
  Receive Date: 20100623
  Receipt Date: 20100611
  Transmission Date: 20101027
  Serious: Yes (Death)
  Sender: FDA-Public Use
  Company Number: INDAB-10-0275

PATIENT
  Age: 36 Year
  Sex: Male
  Weight: 52 kg

DRUGS (2)
  1. ABRAXANE [Suspect]
     Indication: PANCREATIC CARCINOMA
     Dosage: 200 MG, ONE DOSE GIVEN
  2. GEMCITABINE [Suspect]
     Dosage: 1 GM
     Dates: start: 20090901

REACTIONS (2)
  - ANAPHYLACTIC SHOCK [None]
  - HYPERTENSION [None]
